FAERS Safety Report 16701726 (Version 1)
Quarter: 2019Q3

REPORT INFORMATION
  Report Type: Spontaneous
  Country: SE (occurrence: SE)
  Receive Date: 20190814
  Receipt Date: 20190814
  Transmission Date: 20191004
  Serious: Yes (Life-Threatening, Hospitalization, Disabling)
  Sender: FDA-Public Use
  Company Number: SE-SUN PHARMACEUTICAL INDUSTRIES LTD-2019RR-217568

PATIENT
  Age: 14 Year
  Sex: Male
  Weight: 55 kg

DRUGS (14)
  1. OLANZAPINE. [Suspect]
     Active Substance: OLANZAPINE
     Indication: PRODUCT USED FOR UNKNOWN INDICATION
     Dosage: ()
     Route: 065
     Dates: start: 20161229, end: 20170102
  2. OLANZAPINE. [Suspect]
     Active Substance: OLANZAPINE
     Dosage: AS NECESSARY
     Route: 065
     Dates: start: 20160703
  3. STESOLID 5 MG TABLETT [Concomitant]
     Indication: PRODUCT USED FOR UNKNOWN INDICATION
     Dosage: AS NECESSARY; TABLETT
     Route: 065
  4. OLANZAPINE. [Suspect]
     Active Substance: OLANZAPINE
     Dosage: ()
     Route: 065
     Dates: start: 20160702, end: 20161224
  5. OLANZAPINE. [Suspect]
     Active Substance: OLANZAPINE
     Dosage: ()
     Route: 065
     Dates: start: 20161225, end: 20161228
  6. ABILIFY [Concomitant]
     Active Substance: ARIPIPRAZOLE
     Dosage: ()
     Route: 065
     Dates: start: 2019
  7. MELATONIN [Concomitant]
     Active Substance: MELATONIN
     Indication: PRODUCT USED FOR UNKNOWN INDICATION
     Dosage: 5 MILLIGRAM, DAILY; TABLETTER
     Route: 065
  8. THERALEN [Concomitant]
     Active Substance: TRIMEPRAZINE
     Indication: PRODUCT USED FOR UNKNOWN INDICATION
     Dosage: AS NECESSARY
     Route: 065
  9. ABILIFY [Concomitant]
     Active Substance: ARIPIPRAZOLE
     Dosage: ()
     Route: 065
     Dates: start: 20160620, end: 20161220
  10. OLANZAPINE. [Suspect]
     Active Substance: OLANZAPINE
     Indication: PSYCHOTIC SYMPTOM
     Dosage: ()
     Route: 065
     Dates: start: 20170103, end: 20170129
  11. NOZINAN [Concomitant]
     Active Substance: LEVOMEPROMAZINE
     Indication: PRODUCT USED FOR UNKNOWN INDICATION
     Dosage: ()
     Route: 065
     Dates: start: 20160620, end: 20160701
  12. NOZINAN [Concomitant]
     Active Substance: LEVOMEPROMAZINE
     Dosage: ()
     Route: 065
     Dates: start: 20160702, end: 20160703
  13. ABILIFY [Concomitant]
     Active Substance: ARIPIPRAZOLE
     Indication: PRODUCT USED FOR UNKNOWN INDICATION
     Dosage: ()
     Route: 065
     Dates: start: 20161221, end: 2019
  14. RISPERIDONE. [Concomitant]
     Active Substance: RISPERIDONE
     Indication: PRODUCT USED FOR UNKNOWN INDICATION
     Dosage: ()
     Route: 065
     Dates: start: 20160628, end: 20160703

REACTIONS (7)
  - Back disorder [Recovered/Resolved with Sequelae]
  - Mydriasis [Recovered/Resolved with Sequelae]
  - Staring [Recovered/Resolved with Sequelae]
  - Confusional state [Recovered/Resolved with Sequelae]
  - Weight increased [Recovered/Resolved]
  - Product prescribing error [Recovered/Resolved with Sequelae]
  - Musculoskeletal stiffness [Recovered/Resolved with Sequelae]

NARRATIVE: CASE EVENT DATE: 201607
